FAERS Safety Report 17005341 (Version 1)
Quarter: 2019Q4

REPORT INFORMATION
  Report Type: Spontaneous
  Country: TW (occurrence: TW)
  Receive Date: 20191107
  Receipt Date: 20191107
  Transmission Date: 20200122
  Serious: Yes (Other)
  Sender: FDA-Public Use
  Company Number: TW-GLAXOSMITHKLINE-TW2019GSK199738

PATIENT
  Age: 86 Year
  Sex: Female

DRUGS (3)
  1. LANSOPRAZOLE. [Suspect]
     Active Substance: LANSOPRAZOLE
     Indication: GASTRIC ULCER
     Dosage: 30 MG WAS ADMINISTERED DAILY
  2. DICLOFENAC SODIUM. [Suspect]
     Active Substance: DICLOFENAC SODIUM
     Indication: OSTEOARTHRITIS
  3. DICLOFENAC SODIUM. [Suspect]
     Active Substance: DICLOFENAC SODIUM
     Indication: HEADACHE
     Dosage: UNK

REACTIONS (11)
  - Jejunal ulcer [Unknown]
  - Malaise [Unknown]
  - Microcytic anaemia [Recovering/Resolving]
  - Rectal polyp [Unknown]
  - Ileal ulcer [Unknown]
  - Gastric ulcer [Unknown]
  - Drug ineffective [Unknown]
  - Gastrointestinal disorder [Unknown]
  - Small intestinal haemorrhage [Recovering/Resolving]
  - Dizziness [Unknown]
  - Melaena [Unknown]
